FAERS Safety Report 5605878-1 (Version None)
Quarter: 2008Q1

REPORT INFORMATION
  Report Type: 
  Country: None (occurrence: None)
  Receive Date: 20080129
  Receipt Date: 20080118
  Transmission Date: 20080703
  Serious: Yes (Other)
  Sender: FDA-Public Use
  Company Number: PHNU2007DE04267

PATIENT
  Sex: Male

DRUGS (2)
  1. TRIAMTERENE AND HYDROCHLOROTHIAZIDE [Concomitant]
     Dosage: UNK, UNK
  2. EXFORGE [Suspect]
     Dosage: UNK,UNK
     Dates: start: 20070501, end: 20080102

REACTIONS (3)
  - ARTHRALGIA [None]
  - BURSITIS [None]
  - TENOSYNOVITIS [None]
